FAERS Safety Report 9308692 (Version 1)
Quarter: 2013Q2

REPORT INFORMATION
  Report Type: Spontaneous
  Country: GB (occurrence: GB)
  Receive Date: 20130524
  Receipt Date: 20130524
  Transmission Date: 20140414
  Serious: Yes (Life-Threatening, Other)
  Sender: FDA-Public Use
  Company Number: PHHY2013GB051317

PATIENT
  Age: 70 Year
  Sex: Female

DRUGS (3)
  1. 5-FLUOROURACIL [Suspect]
     Route: 042
     Dates: start: 20130507
  2. OXALIPLATIN [Concomitant]
     Dates: start: 20130507
  3. FOLINIC ACID [Concomitant]
     Dates: start: 20130507

REACTIONS (1)
  - Acute myocardial infarction [Recovered/Resolved]
